FAERS Safety Report 6128724-9 (Version None)
Quarter: 2009Q1

REPORT INFORMATION
  Report Type: 
  Country: None (occurrence: None)
  Receive Date: 20090323
  Receipt Date: 20090311
  Transmission Date: 20090719
  Serious: Yes (Other)
  Sender: FDA-Public Use
  Company Number: DE-PFIZER INC-2008089600

PATIENT

DRUGS (12)
  1. LYRICA [Suspect]
     Indication: PAIN
     Route: 048
     Dates: start: 20081015, end: 20081022
  2. LYRICA [Suspect]
     Indication: SLEEP DISORDER
  3. LYRICA [Suspect]
     Indication: FIBROMYALGIA
  4. DURAGESIC-100 [Concomitant]
     Dosage: 25A?G/HOUR EVERY SECOND DAYS FOR YEARS
     Route: 062
  5. MORPHINE [Concomitant]
     Dosage: 20 MG, AS NEEDED FOR YEARS
  6. MICTONORM [Concomitant]
     Dosage: 15 MG, 2X/DAY FOR YEARS
  7. MICTONORM [Concomitant]
     Dosage: 30 MG, 1X/DAY
     Route: 048
  8. ROTIGOTINE [Concomitant]
     Dosage: 2MG EVERY DAY
     Route: 062
     Dates: start: 20070101
  9. PANTOZOL [Concomitant]
     Dosage: 20 MG, 2X/DAY
     Dates: start: 20080101
  10. VALSARTAN [Concomitant]
     Dosage: 80 MG, 1X/DAY
     Route: 048
  11. UTROGEST [Concomitant]
     Dosage: 1 TABLET ONCE DAILY
     Route: 048
  12. SIFROL [Concomitant]
     Dosage: 0.18 MG, AS NEEDED

REACTIONS (6)
  - GINGIVITIS [None]
  - HYPERSENSITIVITY [None]
  - LIP BLISTER [None]
  - LIP SWELLING [None]
  - TONGUE BLISTERING [None]
  - VIRAL INFECTION [None]
